FAERS Safety Report 5654080-6 (Version None)
Quarter: 2008Q1

REPORT INFORMATION
  Report Type: 
  Country: None (occurrence: None)
  Receive Date: 20080306
  Receipt Date: 20080226
  Transmission Date: 20080703
  Serious: Yes (Hospitalization)
  Sender: FDA-Public Use
  Company Number: US-PFIZER INC-2008018244

PATIENT
  Sex: Female

DRUGS (1)
  1. GENOTROPIN [Suspect]
     Indication: DWARFISM

REACTIONS (2)
  - DEHYDRATION [None]
  - GASTRITIS VIRAL [None]
